FAERS Safety Report 8232319-0 (Version None)
Quarter: 2012Q1

REPORT INFORMATION
  Report Type: 
  Country: None (occurrence: None)
  Receive Date: 20120323
  Receipt Date: 20120314
  Transmission Date: 20120608
  Serious: Yes (Hospitalization)
  Sender: FDA-Public Use
  Company Number: US-ASTRAZENECA-2012SE17414

PATIENT
  Sex: Female

DRUGS (1)
  1. SEROQUEL [Suspect]
     Indication: BIPOLAR DISORDER
     Dosage: 200 MG AT NIGHT AND 25 MG UP TO THREE TIMES A DAY AS NEEDED
     Route: 048

REACTIONS (4)
  - LIGAMENT RUPTURE [None]
  - ROAD TRAFFIC ACCIDENT [None]
  - FACIAL BONES FRACTURE [None]
  - FRACTURED COCCYX [None]
